FAERS Safety Report 8989858 (Version 12)
Quarter: 2016Q2

REPORT INFORMATION
  Report Type: Spontaneous
  Country: US (occurrence: US)
  Receive Date: 20121228
  Receipt Date: 20160620
  Transmission Date: 20160815
  Serious: Yes (Hospitalization, Other)
  Sender: FDA-Public Use
  Company Number: US-GLAXOSMITHKLINE-A1006501A

PATIENT
  Age: 63 Year
  Sex: Female
  Weight: 96 kg

DRUGS (10)
  1. FLOLAN [Suspect]
     Active Substance: EPOPROSTENOL SODIUM
     Dosage: 29 NG/KG/MIN CONTINUOUSLY
     Route: 042
  2. FLOLAN [Suspect]
     Active Substance: EPOPROSTENOL SODIUM
     Dosage: 30 NG/KG/MIN
     Route: 042
     Dates: start: 20020904
  3. REVATIO [Concomitant]
     Active Substance: SILDENAFIL CITRATE
  4. FLOLAN [Suspect]
     Active Substance: EPOPROSTENOL SODIUM
     Dosage: UNK
     Dates: start: 20020606
  5. FLOLAN [Suspect]
     Active Substance: EPOPROSTENOL SODIUM
     Dosage: UNK
     Dates: start: 20020606
  6. FLOLAN [Suspect]
     Active Substance: EPOPROSTENOL SODIUM
     Dosage: UNK
     Dates: start: 20020606
  7. FLOLAN [Suspect]
     Active Substance: EPOPROSTENOL SODIUM
     Dosage: 29 NG/KG/MIN CONTINUOUSLY
  8. FLOLAN [Suspect]
     Active Substance: EPOPROSTENOL SODIUM
     Indication: PULMONARY ARTERIAL HYPERTENSION
     Dosage: CONTINUOUS24.3 NG/KG/MIN25 NG/KG/MIN CONTINUOUSLYCONCENTRATION: 45,000 NG/MLVIAL STRENGTH: 1.5 [...]
     Route: 042
     Dates: start: 20020606
  9. FLOLAN [Suspect]
     Active Substance: EPOPROSTENOL SODIUM
     Dosage: UNK
     Dates: start: 20020606
  10. COUMADIN [Concomitant]
     Active Substance: WARFARIN SODIUM

REACTIONS (15)
  - Infusion site pain [Recovered/Resolved]
  - Complication associated with device [Recovered/Resolved]
  - Tooth extraction [Unknown]
  - Condition aggravated [Not Recovered/Not Resolved]
  - Thrombosis [Recovered/Resolved]
  - Device related infection [Unknown]
  - Presyncope [Recovered/Resolved]
  - Dizziness [Recovered/Resolved]
  - Pain in extremity [Not Recovered/Not Resolved]
  - Blood pressure decreased [Recovered/Resolved]
  - Upper respiratory tract infection [Recovered/Resolved]
  - Infusion site swelling [Recovered/Resolved]
  - Tooth infection [Unknown]
  - Catheter site pain [Not Recovered/Not Resolved]
  - Catheter site infection [Unknown]

NARRATIVE: CASE EVENT DATE: 20150817
